FAERS Safety Report 14987935 (Version 2)
Quarter: 2018Q3

REPORT INFORMATION
  Report Type: Spontaneous
  Country: US (occurrence: US)
  Receive Date: 20180608
  Receipt Date: 20180710
  Transmission Date: 20181010
  Serious: No
  Sender: FDA-Public Use
  Company Number: US-VIFOR (INTERNATIONAL) INC.-VIT-2018-05091

PATIENT
  Age: 81 Year
  Sex: Male
  Weight: 100 kg

DRUGS (1)
  1. VELPHORO [Suspect]
     Active Substance: FERRIC OXYHYDROXIDE
     Indication: BLOOD PHOSPHORUS INCREASED
     Route: 048
     Dates: start: 20180411

REACTIONS (2)
  - Diarrhoea [Unknown]
  - Vomiting [Unknown]
